FAERS Safety Report 25700018 (Version 1)
Quarter: 2025Q3

REPORT INFORMATION
  Report Type: Spontaneous
  Country: US (occurrence: None)
  Receive Date: 20250818
  Receipt Date: 20250818
  Transmission Date: 20251021
  Serious: No
  Sender: FDA-CTU
  Company Number: None

PATIENT
  Age: 55 Year
  Sex: Male
  Weight: 112.5 kg

DRUGS (1)
  1. CYANOCOBALAMIN [Suspect]
     Active Substance: CYANOCOBALAMIN
     Indication: Weight decreased
     Dosage: FREQUENCY : WEEKLY;?
     Route: 058

REACTIONS (8)
  - Product use complaint [None]
  - Product dispensing error [None]
  - Accidental overdose [None]
  - Product distribution issue [None]
  - Product colour issue [None]
  - Product storage error [None]
  - Suspected product quality issue [None]
  - Product communication issue [None]

NARRATIVE: CASE EVENT DATE: 20250818
